FAERS Safety Report 6496508-8 (Version None)
Quarter: 2009Q4

REPORT INFORMATION
  Report Type: 
  Country: None (occurrence: None)
  Receive Date: 20091210
  Receipt Date: 20091202
  Transmission Date: 20100525
  Serious: Yes (Congenital Anomaly)
  Sender: FDA-Public Use
  Company Number: ADR52742009

PATIENT
  Sex: Female

DRUGS (4)
  1. LEVITERACETAM (MFR UNKNOWN) [Suspect]
     Dosage: TRANSPLACENTAL
     Route: 064
  2. LAMOTRIGINE [Suspect]
     Dosage: TRANSPLACENTAL
     Route: 064
  3. FOLIC ACID [Concomitant]
  4. LABETALOL HCL [Concomitant]

REACTIONS (4)
  - CENTRAL NERVOUS SYSTEM LESION [None]
  - EXOMPHALOS [None]
  - MATERNAL DRUGS AFFECTING FOETUS [None]
  - SCAN ABNORMAL [None]
